FAERS Safety Report 9694530 (Version 1)
Quarter: 2013Q4

REPORT INFORMATION
  Report Type: Spontaneous
  Country: US (occurrence: US)
  Receive Date: 20131118
  Receipt Date: 20131118
  Transmission Date: 20140711
  Serious: No
  Sender: FDA-Public Use
  Company Number: US-009507513-1311USA006477

PATIENT
  Age: 56 Year
  Sex: Female

DRUGS (2)
  1. ASMANEX TWISTHALER [Suspect]
     Indication: ASTHMA
     Dosage: 1 PUFF DAILY
     Route: 048
     Dates: start: 201111
  2. ZYRTEC [Concomitant]

REACTIONS (3)
  - Paraesthesia oral [Unknown]
  - Cough [Unknown]
  - Drug dose omission [Unknown]
